FAERS Safety Report 9600744 (Version 1)
Quarter: 2013Q4

REPORT INFORMATION
  Report Type: Spontaneous
  Country: US (occurrence: US)
  Receive Date: 20131004
  Receipt Date: 20131004
  Transmission Date: 20140711
  Serious: No
  Sender: FDA-Public Use
  Company Number: US-AMGEN-USASP2013036729

PATIENT
  Age: 59 Year
  Sex: Female

DRUGS (7)
  1. ENBREL [Suspect]
     Indication: PRODUCT USED FOR UNKNOWN INDICATION
     Dosage: 50 MG, QWK
     Route: 058
  2. METHOTREXATE [Concomitant]
     Dosage: 2.5 MG, QD
  3. SINUTAB NON-DRYING [Concomitant]
     Dosage: UNK
  4. SENNA                              /00142201/ [Concomitant]
     Dosage: 8.6 MG, UNK
  5. EXCEDRIN                           /00391201/ [Concomitant]
     Dosage: UNK
  6. CALCIUM 500+D3 [Concomitant]
     Dosage: UNK
  7. VITAMIN B12                        /00056201/ [Concomitant]
     Dosage: 1000, UNK

REACTIONS (6)
  - Swelling [Unknown]
  - Erythema [Unknown]
  - Injection site erythema [Unknown]
  - Injection site reaction [Unknown]
  - Injection site swelling [Unknown]
  - Injection site warmth [Unknown]
